FAERS Safety Report 9093249 (Version 2)
Quarter: 2013Q1

REPORT INFORMATION
  Report Type: Spontaneous
  Country: US (occurrence: US)
  Receive Date: 20130201
  Receipt Date: 20130315
  Transmission Date: 20140127
  Serious: Yes (Hospitalization)
  Sender: FDA-Public Use
  Company Number: US-ABBOTT-13P-163-1041738-00

PATIENT
  Sex: Female

DRUGS (2)
  1. LUPRON DEPOT [Suspect]
     Indication: PELVIC PAIN
     Dates: start: 20090717, end: 20130117
  2. LUPRON DEPOT [Suspect]

REACTIONS (2)
  - Pneumonia [Unknown]
  - Tachycardia [Unknown]
